FAERS Safety Report 20638736 (Version 6)
Quarter: 2023Q1

REPORT INFORMATION
  Report Type: Spontaneous
  Country: US (occurrence: US)
  Receive Date: 20220325
  Receipt Date: 20230103
  Transmission Date: 20230417
  Serious: Yes (Other)
  Sender: FDA-Public Use
  Company Number: US-PFIZER INC-202200411486

PATIENT
  Age: 68 Year
  Sex: Male

DRUGS (1)
  1. VFEND [Suspect]
     Active Substance: VORICONAZOLE
     Dosage: 200 MG, 2X/DAY (BID, TWICE AS DAY)
     Route: 048

REACTIONS (4)
  - Hallucination [Unknown]
  - Renal disorder [Unknown]
  - Liver disorder [Unknown]
  - Wrong technique in product usage process [Unknown]
